FAERS Safety Report 8770371 (Version 2)
Quarter: 2012Q4

REPORT INFORMATION
  Report Type: 
  Country: US (occurrence: US)
  Receive Date: 20120906
  Receipt Date: 20120927
  Transmission Date: 20130627
  Serious: No
  Sender: FDA-Public Use
  Company Number: US-B.I. PHARMACEUTICALS,INC./RIDGEFIELD-2012-BP-21239BP

PATIENT
  Sex: Male
  Weight: 79.83 kg

DRUGS (5)
  1. ZANTAC (RANITIDINE HYDROCHLORIDE) [Suspect]
     Indication: DYSPEPSIA
     Dosage: 300 mg
     Route: 048
     Dates: start: 201205
  2. SIMVASTATIN [Concomitant]
     Indication: BLOOD CHOLESTEROL INCREASED
     Dosage: 20 mg
     Route: 048
     Dates: start: 2005
  3. ASA [Concomitant]
     Dosage: 325 mg
     Route: 048
     Dates: start: 2004
  4. MELATONIN [Concomitant]
     Indication: INSOMNIA
     Dosage: 3 mg
     Route: 048
     Dates: start: 2007
  5. DOXASIN [Concomitant]
     Indication: BLOOD CHOLESTEROL INCREASED
     Dates: start: 2007

REACTIONS (1)
  - Dyspepsia [Not Recovered/Not Resolved]
